FAERS Safety Report 10220966 (Version 2)
Quarter: 2014Q2

REPORT INFORMATION
  Report Type: Spontaneous
  Country: US (occurrence: None)
  Receive Date: 20140604
  Receipt Date: 20140611
  Transmission Date: 20141212
  Serious: Yes (Hospitalization)
  Sender: FDA-Public Use
  Company Number: 2014-US-006448

PATIENT
  Age: 15 Year
  Sex: Female
  Weight: 62.5 kg

DRUGS (9)
  1. XYREM [Suspect]
     Indication: NARCOLEPSY
     Route: 048
     Dates: start: 201404, end: 201404
  2. XYREM [Suspect]
     Indication: CATAPLEXY
     Route: 048
     Dates: start: 201404, end: 201404
  3. ADDERALL [Suspect]
     Indication: NARCOLEPSY
     Route: 048
  4. NORTRIPTYLINE HCL (NORTRIPTYLINE HYDROCHLORIDE) [Concomitant]
  5. VYVANSE (LISDEXAMFETAMINE MESILATE) [Concomitant]
  6. CONCERTA (METHYLPHENIDATE HYDROCHLORIDE) (METHYLPHENIDATE HYDROCHLORIDE) [Concomitant]
  7. NUVIGIL (ARMODAFINIL) [Concomitant]
  8. PROVIGIL (MODAFINIL) [Concomitant]
  9. PROZAC (FLUOXETINE HYDROCHLORIDE) [Concomitant]

REACTIONS (10)
  - Musculoskeletal pain [None]
  - Dehydration [None]
  - Headache [None]
  - Pain in extremity [None]
  - Incorrect dose administered [None]
  - Off label use [None]
  - Cataplexy [None]
  - Tremor [None]
  - Fatigue [None]
  - Weight decreased [None]
